FAERS Safety Report 6581610-2 (Version None)
Quarter: 2010Q1

REPORT INFORMATION
  Report Type: 
  Country: None (occurrence: None)
  Receive Date: 20100215
  Receipt Date: 20100115
  Transmission Date: 20100710
  Serious: No
  Sender: FDA-Public Use
  Company Number: US-BAYER-201011733NA

PATIENT
  Age: 62 Year
  Sex: Female

DRUGS (1)
  1. AVELOX [Suspect]
     Indication: INFLUENZA
     Dates: start: 20091201

REACTIONS (2)
  - AGEUSIA [None]
  - ANOSMIA [None]
